FAERS Safety Report 4798957-2 (Version None)
Quarter: 2005Q4

REPORT INFORMATION
  Report Type: 
  Country: None (occurrence: None)
  Receive Date: 20051014
  Receipt Date: 20051005
  Transmission Date: 20060501
  Serious: Yes (Other)
  Sender: FDA-Public Use
  Company Number: BE-ABBOTT-05P-013-0312936-00

PATIENT
  Sex: Male

DRUGS (6)
  1. DEPAKENE [Suspect]
     Indication: EPILEPSY
     Route: 048
  2. DEPAKENE [Suspect]
     Route: 048
  3. DEPAKENE [Suspect]
     Route: 048
  4. DEPAKINE IV [Suspect]
     Indication: EPILEPSY
     Route: 042
  5. CARBAMAZEPINE [Concomitant]
     Indication: EPILEPSY
  6. CARBAMAZEPINE [Concomitant]

REACTIONS (1)
  - DELUSIONAL DISORDER, PERSECUTORY TYPE [None]
